FAERS Safety Report 4474797-9 (Version None)
Quarter: 2004Q4

REPORT INFORMATION
  Report Type: 
  Country: None (occurrence: None)
  Receive Date: 20041012
  Receipt Date: 20040929
  Transmission Date: 20050328
  Serious: Yes (Other)
  Sender: FDA-Public Use
  Company Number: 8003115

PATIENT
  Age: 31 Year
  Sex: Female
  Weight: 48 kg

DRUGS (6)
  1. KEPPRA [Suspect]
     Indication: EPILEPSY
     Dosage: 3000 MG /D PO
     Route: 048
     Dates: start: 20011001
  2. TEGRETOL [Suspect]
     Indication: EPILEPSY
     Dosage: 800 MG 1/D PO
     Route: 048
     Dates: start: 20010417
  3. AMOXICILLIN AND CLAVULANATE POTASSIUM [Concomitant]
  4. LOMEXIN [Concomitant]
  5. FOLIC ACID [Concomitant]
  6. TAMAXIN [Concomitant]

REACTIONS (2)
  - ABORTION INDUCED [None]
  - DRUG EXPOSURE DURING PREGNANCY [None]
